FAERS Safety Report 6766406-0 (Version None)
Quarter: 2010Q2

REPORT INFORMATION
  Report Type: 
  Country: None (occurrence: None)
  Receive Date: 20100609
  Receipt Date: 20100526
  Transmission Date: 20101027
  Serious: Yes (Other)
  Sender: FDA-Public Use
  Company Number: 7006334

PATIENT
  Age: 43 Year
  Sex: Female
  Weight: 68 kg

DRUGS (3)
  1. REBIF [Suspect]
     Indication: MULTIPLE SCLEROSIS
     Dosage: 44 MCG, 3 IN 1 WK, SUBCUTANEOUS
     Route: 058
     Dates: start: 20080523, end: 20100417
  2. AMITRIPTYLINE HYDROCHLORIDE [Concomitant]
  3. BACLOFEN [Concomitant]

REACTIONS (8)
  - CHOLELITHIASIS [None]
  - GASTRIC INFECTION [None]
  - HEADACHE [None]
  - INFLUENZA LIKE ILLNESS [None]
  - LIVER DISORDER [None]
  - NAUSEA [None]
  - SWELLING [None]
  - VOMITING [None]
